FAERS Safety Report 21743689 (Version 3)
Quarter: 2023Q4

REPORT INFORMATION
  Report Type: Spontaneous
  Country: JP (occurrence: JP)
  Receive Date: 20221217
  Receipt Date: 20231218
  Transmission Date: 20240110
  Serious: Yes (Hospitalization)
  Sender: FDA-Public Use
  Company Number: JP-JNJFOC-20221234973

PATIENT
  Age: 82 Year
  Sex: Female

DRUGS (7)
  1. TRACLEER [Suspect]
     Active Substance: BOSENTAN
     Indication: Systemic scleroderma
     Route: 048
     Dates: start: 20200225
  2. TRACLEER [Suspect]
     Active Substance: BOSENTAN
     Indication: Skin ulcer
     Route: 048
     Dates: start: 20200313
  3. BERAPROST SODIUM [Concomitant]
     Active Substance: BERAPROST SODIUM
     Indication: Skin ulcer
     Route: 048
     Dates: start: 20070421
  4. PREDONINE [Concomitant]
     Active Substance: PREDNISOLONE
     Indication: Systemic scleroderma
     Route: 048
     Dates: start: 20050117
  5. BONALON [Concomitant]
     Active Substance: ALENDRONATE SODIUM
     Indication: Osteoporosis prophylaxis
     Route: 048
     Dates: start: 20150407
  6. LANSOPRAZOLE [Concomitant]
     Active Substance: LANSOPRAZOLE
     Indication: Gastrooesophageal reflux disease
     Route: 048
     Dates: start: 20160227
  7. ALPROSTADIL [Concomitant]
     Active Substance: ALPROSTADIL
     Indication: Skin ulcer
     Route: 042
     Dates: start: 20180116

REACTIONS (2)
  - Hospitalisation [Unknown]
  - General physical health deterioration [Unknown]
